FAERS Safety Report 8272186-2 (Version None)
Quarter: 2012Q2

REPORT INFORMATION
  Report Type: 
  Country: None (occurrence: None)
  Receive Date: 20120410
  Receipt Date: 20120403
  Transmission Date: 20120825
  Serious: Yes (Other)
  Sender: FDA-Public Use
  Company Number: US-JNJFOC-20120211851

PATIENT
  Age: 5 Month
  Sex: Female
  Weight: 6.35 kg

DRUGS (6)
  1. CHILDREN'S TYLENOL SUSPENSION [Suspect]
     Indication: TEETHING
     Dosage: 1/2 TEASPOON
     Route: 048
     Dates: start: 20120220, end: 20120220
  2. CHILDREN'S TYLENOL SUSPENSION [Suspect]
     Route: 048
     Dates: start: 20120203, end: 20120203
  3. CHILDREN'S TYLENOL SUSPENSION [Suspect]
     Route: 048
     Dates: start: 20120203, end: 20120203
  4. CHILDREN'S TYLENOL SUSPENSION [Suspect]
     Indication: IRRITABILITY
     Dosage: 1/2 TEASPOON
     Route: 048
     Dates: start: 20120220, end: 20120220
  5. CHILDREN'S TYLENOL SUSPENSION [Suspect]
     Route: 048
     Dates: start: 20120203, end: 20120203
  6. CHILDREN'S TYLENOL SUSPENSION [Suspect]
     Indication: PYREXIA
     Dosage: 1/2 TEASPOON
     Route: 048
     Dates: start: 20120220, end: 20120220

REACTIONS (3)
  - GASTROENTERITIS SALMONELLA [None]
  - WRONG DRUG ADMINISTERED [None]
  - TRANSMISSION OF AN INFECTIOUS AGENT VIA A MEDICINAL PRODUCT [None]
